FAERS Safety Report 20112936 (Version 8)
Quarter: 2022Q1

REPORT INFORMATION
  Report Type: Report from Study
  Country: DE (occurrence: DE)
  Receive Date: 20211125
  Receipt Date: 20220327
  Transmission Date: 20220423
  Serious: Yes (Hospitalization, Other)
  Sender: FDA-Public Use
  Company Number: DE-BRISTOL-MYERS SQUIBB COMPANY-BMS-2021-113858

PATIENT
  Age: 63 Year
  Sex: Male
  Weight: 100 kg

DRUGS (10)
  1. NIVOLUMAB [Suspect]
     Active Substance: NIVOLUMAB
     Indication: Malignant melanoma
     Dosage: 90 MILLIGRAM
     Route: 065
     Dates: start: 20210930
  2. NIVOLUMAB [Suspect]
     Active Substance: NIVOLUMAB
     Dosage: 90 MILLIGRAM
     Route: 065
     Dates: start: 20211020, end: 20211210
  3. IPILIMUMAB [Suspect]
     Active Substance: IPILIMUMAB
     Indication: Malignant melanoma
     Dosage: 276 MILLIGRAM
     Route: 065
     Dates: start: 20210930
  4. IPILIMUMAB [Suspect]
     Active Substance: IPILIMUMAB
     Dosage: 270 MILLIGRAM
     Route: 065
     Dates: start: 20211020, end: 20211110
  5. NIVOLUMAB [Suspect]
     Active Substance: NIVOLUMAB
     Indication: Malignant melanoma
     Dosage: 90 MILLIGRAM
     Route: 065
     Dates: start: 20210930
  6. NIVOLUMAB [Suspect]
     Active Substance: NIVOLUMAB
     Dosage: 90 MILLIGRAM
     Route: 065
     Dates: start: 20211020, end: 20211210
  7. RAMIPRIL [Concomitant]
     Active Substance: RAMIPRIL
     Indication: Product used for unknown indication
     Dosage: 10 MILLIGRAM
     Route: 048
  8. PANTOPRAZOLE [Concomitant]
     Active Substance: PANTOPRAZOLE
     Indication: Prophylaxis
     Dosage: 24 MILLIGRAM
     Route: 048
     Dates: start: 20211024
  9. CERTOPARIN SODIUM [Concomitant]
     Active Substance: CERTOPARIN SODIUM
     Indication: Prophylaxis
     Dosage: 3000 INTERNATIONAL UNIT
     Route: 058
     Dates: start: 20211024, end: 20211027
  10. LERCANIDIPINE [Concomitant]
     Active Substance: LERCANIDIPINE
     Indication: Product used for unknown indication
     Dosage: 10 MILLIGRAM
     Route: 048
     Dates: start: 20211110

REACTIONS (6)
  - Malignant neoplasm progression [Unknown]
  - Metastases to liver [Unknown]
  - Metastases to kidney [Unknown]
  - Back pain [Unknown]
  - Dysgeusia [Not Recovered/Not Resolved]
  - Constipation [Recovered/Resolved]

NARRATIVE: CASE EVENT DATE: 20211001
